FAERS Safety Report 7005491-8 (Version None)
Quarter: 2010Q3

REPORT INFORMATION
  Report Type: 
  Country: None (occurrence: None)
  Receive Date: 20100921
  Receipt Date: 20100913
  Transmission Date: 20110219
  Serious: Yes (Death)
  Sender: FDA-Public Use
  Company Number: US-CELGENEUS-163-21880-10091145

PATIENT
  Sex: Female

DRUGS (4)
  1. REVLIMID [Suspect]
     Indication: MULTIPLE MYELOMA
     Route: 048
     Dates: start: 20071001, end: 20080501
  2. REVLIMID [Suspect]
     Route: 048
     Dates: start: 20081201, end: 20090301
  3. REVLIMID [Suspect]
     Route: 048
     Dates: start: 20090601, end: 20100701
  4. REVLIMID [Suspect]
     Route: 048
     Dates: start: 20100801, end: 20100910

REACTIONS (1)
  - CARDIAC FAILURE [None]
